FAERS Safety Report 5239621-5 (Version None)
Quarter: 2007Q1

REPORT INFORMATION
  Report Type: 
  Country: None (occurrence: None)
  Receive Date: 20070216
  Receipt Date: 20070209
  Transmission Date: 20070707
  Serious: Yes (Life-Threatening, Hospitalization)
  Sender: FDA-Public Use
  Company Number: JP-JPN-A200700056

PATIENT
  Age: 74 Year
  Sex: Male
  Weight: 58 kg

DRUGS (10)
  1. PAXIL [Suspect]
     Indication: DRUG USE FOR UNKNOWN INDICATION
     Dosage: 20MG PER DAY
     Route: 048
     Dates: start: 20060827
  2. MYSLEE [Concomitant]
     Route: 048
  3. OLMETEC [Concomitant]
     Indication: HYPERTENSION
     Route: 048
  4. ZYLORIC [Concomitant]
     Route: 048
  5. DEPAS [Concomitant]
     Route: 048
  6. SELBEX [Concomitant]
     Indication: GASTRITIS
     Dosage: 1500MG PER DAY
     Route: 048
  7. SIGMART [Concomitant]
     Indication: ANGINA PECTORIS
     Route: 048
  8. ANPLAG [Concomitant]
     Indication: ARTERIOSCLEROSIS OBLITERANS
     Dosage: 200MG PER DAY
  9. ASPIRIN [Concomitant]
     Indication: ANGINA PECTORIS
     Dosage: 100MG PER DAY
     Route: 048
  10. UNKNOWN MEDICATION [Concomitant]
     Indication: LARGE INTESTINE CARCINOMA
     Dosage: 300MG PER DAY
     Route: 048

REACTIONS (8)
  - BLOOD CREATINE PHOSPHOKINASE INCREASED [None]
  - BLOOD PRESSURE DECREASED [None]
  - CONVULSION [None]
  - DEPRESSED LEVEL OF CONSCIOUSNESS [None]
  - MYALGIA [None]
  - MYOGLOBINURIA [None]
  - RHABDOMYOLYSIS [None]
  - TREMOR [None]
